FAERS Safety Report 8013828-6 (Version None)
Quarter: 2011Q4

REPORT INFORMATION
  Report Type: 
  Country: None (occurrence: None)
  Receive Date: 20111229
  Receipt Date: 20111222
  Transmission Date: 20120403
  Serious: Yes (Hospitalization)
  Sender: FDA-Public Use
  Company Number: PHHY2011DE22529

PATIENT
  Sex: Male

DRUGS (1)
  1. RITALIN [Suspect]
     Indication: ATTENTION DEFICIT/HYPERACTIVITY DISORDER
     Dosage: 30 MG, QD
     Route: 048
     Dates: start: 20110209, end: 20110701

REACTIONS (5)
  - FEELING ABNORMAL [None]
  - DYSURIA [None]
  - PENIS DISORDER [None]
  - MENTAL DISORDER [None]
  - TESTICULAR PAIN [None]
